FAERS Safety Report 5759556-9 (Version None)
Quarter: 2008Q2

REPORT INFORMATION
  Report Type: 
  Country: None (occurrence: None)
  Receive Date: 20080604
  Receipt Date: 20080604
  Transmission Date: 20081010
  Serious: Yes (Life-Threatening)
  Sender: FDA-Public Use
  Company Number: None

PATIENT
  Age: 19 Year
  Sex: Male
  Weight: 40 kg

DRUGS (1)
  1. DIGITEK 0.125MG TABLETS [Suspect]
     Indication: CARDIOMYOPATHY
     Dosage: 125 MCG   1  9AM PO; 62.5 MCG 9PM PO 3-4 YEARS
     Route: 048

REACTIONS (7)
  - BLOOD PRESSURE DECREASED [None]
  - HAEMODIALYSIS [None]
  - HEART RATE DECREASED [None]
  - PHARMACEUTICAL PRODUCT COMPLAINT [None]
  - RENAL FAILURE [None]
  - RENAL IMPAIRMENT [None]
  - THERAPEUTIC AGENT TOXICITY [None]
